FAERS Safety Report 18221059 (Version 1)
Quarter: 2020Q3

REPORT INFORMATION
  Report Type: Spontaneous
  Country: US (occurrence: US)
  Receive Date: 20200902
  Receipt Date: 20200902
  Transmission Date: 20201103
  Serious: Yes (Other)
  Sender: FDA-Public Use
  Company Number: US-AUROBINDO-AUR-APL-2020-039991

PATIENT
  Age: 66 Year
  Sex: Female

DRUGS (6)
  1. LORAZEPAM. [Suspect]
     Active Substance: LORAZEPAM
     Indication: CATATONIA
     Dosage: 3 MILLIGRAM, ONCE A DAY
     Route: 048
  2. LORAZEPAM. [Suspect]
     Active Substance: LORAZEPAM
     Dosage: 6 MILLIGRAM, ONCE A DAY
     Route: 048
  3. LORAZEPAM. [Suspect]
     Active Substance: LORAZEPAM
     Dosage: 3 MILLIGRAM, ONCE A DAY
     Route: 065
  4. LURASIDONE [Concomitant]
     Active Substance: LURASIDONE
     Indication: CATATONIA
     Dosage: 20 MILLIGRAM, ONCE A DAY
  5. LURASIDONE [Concomitant]
     Active Substance: LURASIDONE
  6. LURASIDONE [Concomitant]
     Active Substance: LURASIDONE
     Dosage: 60 MILLIGRAM, ONCE A DAY

REACTIONS (2)
  - Sedation complication [Unknown]
  - Drug intolerance [Unknown]
